FAERS Safety Report 9075046 (Version 1)
Quarter: 2013Q1

REPORT INFORMATION
  Report Type: Report from Study
  Country: US (occurrence: US)
  Receive Date: 20130129
  Receipt Date: 20130129
  Transmission Date: 20140127
  Serious: No
  Sender: FDA-Public Use
  Company Number: US-ABBOTT-12P-163-0922676-00

PATIENT
  Sex: Female
  Weight: 83.99 kg

DRUGS (6)
  1. HUMIRA 40 MG/0.8 ML PEN [Suspect]
     Indication: RHEUMATOID ARTHRITIS
     Route: 058
     Dates: start: 2008, end: 20120229
  2. METHOTREXATE [Concomitant]
     Indication: RHEUMATOID ARTHRITIS
  3. FOLIC ACID [Concomitant]
     Indication: VITAMIN SUPPLEMENTATION
  4. METFORMIN [Concomitant]
     Indication: DIABETES MELLITUS
  5. PREVASTATIN [Concomitant]
     Indication: BLOOD CHOLESTEROL INCREASED
  6. GABAPENTIN [Concomitant]
     Indication: PAIN IN EXTREMITY

REACTIONS (1)
  - Pain [Not Recovered/Not Resolved]
